FAERS Safety Report 10393625 (Version 1)
Quarter: 2014Q3

REPORT INFORMATION
  Report Type: Spontaneous
  Country: US (occurrence: US)
  Receive Date: 20140819
  Receipt Date: 20140819
  Transmission Date: 20150326
  Serious: No
  Sender: FDA-Public Use
  Company Number: US-GE HEALTHCARE MEDICAL DIAGNOSTICS-OMPQ-PR-1404S-0424

PATIENT
  Age: 43 Year
  Sex: Male
  Weight: 68.1 kg

DRUGS (3)
  1. OMNIPAQUE [Suspect]
     Active Substance: IOHEXOL
     Indication: DIAGNOSTIC PROCEDURE
  2. OMNIPAQUE [Suspect]
     Active Substance: IOHEXOL
     Indication: THROAT IRRITATION
  3. OMNIPAQUE [Suspect]
     Active Substance: IOHEXOL
     Indication: OROPHARYNGEAL PAIN
     Route: 042
     Dates: start: 20140423, end: 20140423

REACTIONS (2)
  - Sneezing [Unknown]
  - Throat irritation [Unknown]

NARRATIVE: CASE EVENT DATE: 20140423
